FAERS Safety Report 4673522-6 (Version None)
Quarter: 2005Q2

REPORT INFORMATION
  Report Type: 
  Country: None (occurrence: None)
  Receive Date: 20050525
  Receipt Date: 20050425
  Transmission Date: 20051028
  Serious: Yes (Hospitalization)
  Sender: FDA-Public Use
  Company Number: PHHO2005RO06640

PATIENT
  Age: 47 Year
  Sex: Female
  Weight: 57 kg

DRUGS (21)
  1. METOPROLOL SUCCINATE [Concomitant]
     Dosage: 50 MG, BID
     Dates: start: 20000101
  2. ENALAPRIL MALEATE [Concomitant]
     Dosage: 10 MG, BID
     Dates: start: 20040601
  3. VEROSPIRON [Concomitant]
     Dosage: 50 MG, QD
     Dates: start: 20040601
  4. TROMBOSTOP [Concomitant]
     Dosage: 1 MG, QD
     Dates: start: 20040601
  5. ZOLEDRONATE VS RISEDRONATE [Suspect]
     Indication: OSTEOPOROSIS
     Dosage: UNK, UNK
     Dates: start: 20040824, end: 20050228
  6. PREDNISONE [Concomitant]
     Indication: VASCULITIS
     Dosage: 10 MG, QD
     Route: 048
     Dates: start: 20050213, end: 20050228
  7. PREDNISONE [Concomitant]
     Dosage: 30 MG, TID
     Route: 048
     Dates: start: 20010701, end: 20010901
  8. PREDNISONE [Concomitant]
     Dosage: 10 MG, QD
     Route: 048
     Dates: start: 20010901, end: 20020101
  9. PREDNISONE [Concomitant]
     Dosage: 15 MG, QD
     Route: 048
     Dates: start: 20010401, end: 20020901
  10. PREDNISONE [Concomitant]
     Dosage: 10 MG, QD
     Route: 048
     Dates: start: 20020901, end: 20030101
  11. PREDNISONE [Concomitant]
     Dosage: 5 MG, QD
     Route: 048
     Dates: start: 20030101, end: 20040201
  12. PREDNISONE [Concomitant]
     Dosage: 10 MG, QD
     Route: 048
     Dates: start: 20040201, end: 20040601
  13. PREDNISONE [Concomitant]
     Dosage: 30 MG, QD
     Route: 048
     Dates: start: 20040601, end: 20040625
  14. PREDNISONE [Concomitant]
     Dosage: 20 MG, QD
     Route: 048
     Dates: start: 20040702, end: 20040707
  15. PREDNISONE [Concomitant]
     Dosage: 25 MG, QD
     Route: 048
     Dates: start: 20040626, end: 20040701
  16. PREDNISONE [Concomitant]
     Dosage: 15 MG, QD
     Route: 048
     Dates: start: 20040708, end: 20040714
  17. PREDNISONE [Concomitant]
     Dosage: 10 MG, QD
     Route: 048
     Dates: start: 20040715, end: 20050112
  18. PREDNISONE [Concomitant]
     Dosage: 30 MG, QD
     Route: 048
     Dates: start: 20050113, end: 20050120
  19. PREDNISONE [Concomitant]
     Dosage: 25 MG, QD
     Route: 048
     Dates: start: 20050121, end: 20050128
  20. PREDNISONE [Concomitant]
     Dosage: 20 MG, QD
     Route: 048
     Dates: start: 20050129, end: 20050204
  21. PREDNISONE [Concomitant]
     Dosage: 15 MG, QD
     Route: 048
     Dates: start: 20050205, end: 20050212

REACTIONS (11)
  - ABDOMINAL PAIN UPPER [None]
  - ANOREXIA [None]
  - ASTHENIA [None]
  - EROSIVE DUODENITIS [None]
  - FATIGUE [None]
  - GALLBLADDER CHOLESTEROLOSIS [None]
  - HEPATITIS CHOLESTATIC [None]
  - HIATUS HERNIA [None]
  - NAUSEA [None]
  - OEDEMA PERIPHERAL [None]
  - PROTEINURIA [None]
